FAERS Safety Report 5981240-7 (Version None)
Quarter: 2008Q4

REPORT INFORMATION
  Report Type: 
  Country: None (occurrence: None)
  Receive Date: 20081205
  Receipt Date: 20071121
  Transmission Date: 20090506
  Serious: Yes (Death, Hospitalization)
  Sender: FDA-Public Use
  Company Number: US-ASTRAZENECA-2006UW21563

PATIENT
  Age: 435 Month
  Sex: Female
  Weight: 125.1 kg

DRUGS (68)
  1. SEROQUEL [Suspect]
     Indication: DEPRESSION
     Dosage: 25 MG, 100 MG, 200 MG, 300 MG AND 600 MG - 1200 MG
     Route: 048
     Dates: start: 20020501, end: 20060106
  2. EFFEXOR [Concomitant]
     Dates: start: 20051001, end: 20051101
  3. WELLBUTRIN [Concomitant]
  4. ATIVAN [Concomitant]
  5. AMBIEN [Concomitant]
  6. PAXIL [Concomitant]
  7. POTASSIUM CHLORIDE [Concomitant]
  8. SERZONE [Concomitant]
  9. NEXIUM [Concomitant]
     Route: 048
  10. AMITRIPTYLINE HCL [Concomitant]
  11. HYDROCHLOROTHIAZIDE [Concomitant]
  12. ESTRATEST [Concomitant]
  13. SYNTHROID [Concomitant]
  14. DETROL LA [Concomitant]
  15. SINGULAIR [Concomitant]
  16. CLARINEX [Concomitant]
  17. CYCLOBENZAPRINE HCL [Concomitant]
  18. MAXALT [Concomitant]
  19. NEURONTIN [Concomitant]
  20. DITROPAN XL [Concomitant]
  21. PREDNISONE TAB [Concomitant]
  22. COMPAZINE [Concomitant]
  23. COMBIVENT [Concomitant]
  24. SEREVENT [Concomitant]
  25. PULMICORT-100 [Concomitant]
  26. FOSAMAX [Concomitant]
  27. ZYRTEC [Concomitant]
  28. LASIX [Concomitant]
  29. VICODIN [Concomitant]
  30. TIZANIDINE HCL [Concomitant]
  31. TRIAMCINOLONE [Concomitant]
  32. PREVACID [Concomitant]
  33. HYOSCYAMINE [Concomitant]
  34. CARDIZEM [Concomitant]
  35. PLAQUENIL [Concomitant]
  36. DARVOCET [Concomitant]
  37. LEVAQUIN [Concomitant]
  38. ACTOS [Concomitant]
  39. PROMETHAZINE [Concomitant]
  40. FLOVENT [Concomitant]
  41. MAXZIDE [Concomitant]
  42. DIFLUCAN [Concomitant]
  43. TUSSIONEX [Concomitant]
  44. OXYCODONE HCL [Concomitant]
  45. ZITHROMAX [Concomitant]
  46. MYCELEX [Concomitant]
  47. METOPROLOL TARTRATE [Concomitant]
  48. XENICAL [Concomitant]
  49. CLONIDINE [Concomitant]
  50. OMEPRAZOLE [Concomitant]
  51. CLINDAMYCIN HCL [Concomitant]
  52. CIPRO [Concomitant]
  53. KADIAN [Concomitant]
  54. ZOFRAN [Concomitant]
  55. ZAROXOLYN [Concomitant]
  56. DURAGESIC-100 [Concomitant]
  57. ROBITUSSIN [Concomitant]
  58. REGLAN [Concomitant]
  59. LIDODERM [Concomitant]
  60. CHERATUSSIN [Concomitant]
  61. PHENAZOPYRIDINE HCL TAB [Concomitant]
  62. ALBUTEROL [Concomitant]
  63. REMERON [Concomitant]
  64. FLURAZEPAM [Concomitant]
  65. DESMOPRESSIN ACETATE [Concomitant]
  66. CELEBREX [Concomitant]
  67. IMITREX [Concomitant]
  68. VIOXX [Concomitant]

REACTIONS (18)
  - ABDOMINAL PAIN [None]
  - ACIDOSIS [None]
  - CARDIAC ARREST [None]
  - CHOLECYSTITIS [None]
  - CHOLELITHIASIS [None]
  - DEATH [None]
  - FLUID OVERLOAD [None]
  - GASTROOESOPHAGEAL REFLUX DISEASE [None]
  - HYPERTENSION [None]
  - HYPOTENSION [None]
  - OBESITY [None]
  - PNEUMOPERITONEUM [None]
  - PYELONEPHRITIS [None]
  - RESPIRATORY FAILURE [None]
  - SEPTIC SHOCK [None]
  - SLEEP APNOEA SYNDROME [None]
  - TACHYCARDIA [None]
  - TYPE 2 DIABETES MELLITUS [None]
